FAERS Safety Report 4636248-0 (Version None)
Quarter: 2005Q2

REPORT INFORMATION
  Report Type: 
  Country: None (occurrence: None)
  Receive Date: 20050415
  Receipt Date: 20040209
  Transmission Date: 20051028
  Serious: No
  Sender: FDA-Public Use
  Company Number: US-BRISTOL-MYERS SQUIBB COMPANY-12499760

PATIENT
  Age: 58 Year
  Sex: Female
  Weight: 68 kg

DRUGS (12)
  1. CARBOPLATIN [Suspect]
     Indication: OVARIAN CANCER
     Dosage: RE-CHALLENGE ON 12-FEB-2004 WITH DILUTED DOSES
     Route: 042
     Dates: start: 20040202, end: 20040202
  2. DEXAMETHASONE [Concomitant]
     Indication: PREMEDICATION
     Dosage: DOSE DECREASED TO 16 MG FOR CARBOPLATIN PREMEDICATION OF 02-FEB-2004 PRE-MED ^24-12^ 12-FEB-2004
  3. PEPCID [Concomitant]
     Indication: PREMEDICATION
     Dosage: ALSO ADMINISTERED ON 12-FEB-2004
  4. ZANTAC [Concomitant]
     Indication: PREMEDICATION
     Dosage: ALSO ADMINISTERED ON 12-FEB-2004
     Dates: start: 20040202
  5. ANZEMET [Concomitant]
  6. COMPAZINE [Concomitant]
  7. LUVOX [Concomitant]
  8. ATENOLOL [Concomitant]
     Dosage: DOSE: 10 OR 20 DAY
  9. TRAZODONE HCL [Concomitant]
  10. MIRALAX [Concomitant]
  11. PHENERGAN [Concomitant]
     Indication: PREMEDICATION
     Dosage: ALSO ADMINISTERED ON 12-FEB-2004
     Dates: start: 20040202
  12. ZYRTEC [Concomitant]
     Indication: PREMEDICATION
     Dosage: ALSO ADMINISTERED ON 12-FEB-2004
     Dates: start: 20040202

REACTIONS (1)
  - HYPERSENSITIVITY [None]
